FAERS Safety Report 17377112 (Version 2)
Quarter: 2020Q1

REPORT INFORMATION
  Report Type: Report from Study
  Country: FR (occurrence: FR)
  Receive Date: 20200206
  Receipt Date: 20200213
  Transmission Date: 20200409
  Serious: Yes (Hospitalization)
  Sender: FDA-Public Use
  Company Number: FR-ROCHE-2464648

PATIENT
  Age: 75 Year
  Sex: Female
  Weight: 61.8 kg

DRUGS (9)
  1. TOPLEXIL [OXOMEMAZINE] [Concomitant]
     Indication: BRONCHITIS
     Route: 065
     Dates: start: 20191024, end: 20191024
  2. LENALIDOMIDE [Suspect]
     Active Substance: LENALIDOMIDE
     Indication: B-CELL LYMPHOMA
     Dosage: AT A DOSE OF 15 OR 20 MG (DOSE MAY BE DE-ESCALATED TO 10 MG) DURING INDUCTION TREATMENT AND AT 10 MG
     Route: 048
     Dates: start: 20170629
  3. ATEZOLIZUMAB. [Suspect]
     Active Substance: ATEZOLIZUMAB
     Indication: B-CELL LYMPHOMA
     Dosage: ON DAYS 1 AND 15 OF CYCLES 2 TO 6?ON 27/SEP/2019, SHE RECEIVED MOST RECENT DOSE OF ATEZOLIZUMAB (840
     Route: 041
     Dates: start: 20170726
  4. VITAMIN C [Concomitant]
     Active Substance: ASCORBIC ACID
     Indication: BRONCHITIS
     Route: 065
     Dates: start: 20191024, end: 20191031
  5. PENTACARINAT [Concomitant]
     Active Substance: PENTAMIDINE ISETHIONATE
     Indication: INFECTION PROPHYLAXIS
  6. VANCOMYCINE [VANCOMYCIN] [Concomitant]
     Active Substance: VANCOMYCIN
     Indication: DIARRHOEA
     Route: 065
     Dates: start: 20191106, end: 20191116
  7. OBINUTUZUMAB. [Suspect]
     Active Substance: OBINUTUZUMAB
     Indication: B-CELL LYMPHOMA
     Dosage: ON DAYS 1, 8, AND 15 OF THE FIRST CYCLE?ON 26/SEP/2019, SHE RECEIVED MOST RECENT DOSE OF OBINUTUZUMA
     Route: 042
     Dates: start: 20170629
  8. NASACORT [Concomitant]
     Active Substance: TRIAMCINOLONE ACETONIDE
     Indication: UPPER RESPIRATORY TRACT INFECTION
     Route: 065
     Dates: start: 20181022
  9. AUGMENTIN [Concomitant]
     Active Substance: AMOXICILLIN\CLAVULANATE POTASSIUM
     Indication: BRONCHITIS
     Route: 065
     Dates: start: 20191024, end: 20191031

REACTIONS (1)
  - Lung disorder [Recovered/Resolved]

NARRATIVE: CASE EVENT DATE: 20191104
